FAERS Safety Report 7032220-4 (Version None)
Quarter: 2010Q4

REPORT INFORMATION
  Report Type: 
  Country: None (occurrence: None)
  Receive Date: 20101007
  Receipt Date: 20100308
  Transmission Date: 20110411
  Serious: Yes (Hospitalization, Other)
  Sender: FDA-Public Use
  Company Number: US-BRISTOL-MYERS SQUIBB COMPANY-15007313

PATIENT
  Age: 55 Year
  Sex: Male
  Weight: 79 kg

DRUGS (3)
  1. CETUXIMAB [Suspect]
     Indication: TONSIL CANCER
     Route: 042
     Dates: start: 20100215
  2. FLUOROURACIL [Suspect]
     Indication: TONSIL CANCER
     Dosage: 1284MG DAILY X5DAYS Q2WK
     Route: 042
     Dates: start: 20100218
  3. HYDROXYUREA [Concomitant]
     Indication: TONSIL CANCER
     Dosage: LAST DOSE:18FEB10
     Route: 048

REACTIONS (5)
  - ABDOMINAL PAIN [None]
  - BLOOD MAGNESIUM DECREASED [None]
  - BLOOD POTASSIUM DECREASED [None]
  - HAEMATURIA [None]
  - URINARY RETENTION [None]
